FAERS Safety Report 9052900 (Version 1)
Quarter: 2013Q1

REPORT INFORMATION
  Report Type: Spontaneous
  Country: FR (occurrence: FR)
  Receive Date: 20130207
  Receipt Date: 20130207
  Transmission Date: 20140127
  Serious: Yes (Hospitalization)
  Sender: FDA-Public Use
  Company Number: PHHY2012FR104990

PATIENT
  Sex: Female

DRUGS (4)
  1. CLOMIPRAMINE [Suspect]
     Dosage: 75 MG, QD
     Route: 048
  2. KEPPRA [Concomitant]
  3. BISOPROLOL [Concomitant]
  4. AMLODIPINE [Concomitant]

REACTIONS (1)
  - Hyponatraemia [Unknown]
